FAERS Safety Report 12806442 (Version 3)
Quarter: 2016Q4

REPORT INFORMATION
  Report Type: Report from Study
  Country: US (occurrence: US)
  Receive Date: 20161004
  Receipt Date: 20161028
  Transmission Date: 20170207
  Serious: Yes (Other)
  Sender: FDA-Public Use
  Company Number: US-BAYER-2016-188287

PATIENT
  Age: 67 Year
  Sex: Female

DRUGS (2)
  1. NEXAVAR [Suspect]
     Active Substance: SORAFENIB
     Indication: HEPATOCELLULAR CARCINOMA
     Dosage: 2 TABLETS HS
     Route: 048
     Dates: start: 201610
  2. NEXAVAR [Suspect]
     Active Substance: SORAFENIB
     Indication: HEPATOCELLULAR CARCINOMA
     Dosage: 2 TABLETS HS
     Route: 048
     Dates: start: 20160920, end: 20161003

REACTIONS (13)
  - Nausea [None]
  - Asthenia [None]
  - Impaired self-care [Not Recovered/Not Resolved]
  - Nausea [None]
  - Vomiting [None]
  - Diarrhoea [None]
  - Asthenia [Not Recovered/Not Resolved]
  - Pain [None]
  - Fatigue [None]
  - Hypophagia [None]
  - Decreased appetite [None]
  - Activities of daily living impaired [Not Recovered/Not Resolved]
  - Dyspepsia [None]

NARRATIVE: CASE EVENT DATE: 201609
